FAERS Safety Report 8291490-5 (Version None)
Quarter: 2012Q2

REPORT INFORMATION
  Report Type: 
  Country: None (occurrence: None)
  Receive Date: 20120417
  Receipt Date: 20110614
  Transmission Date: 20120825
  Serious: Yes (Death)
  Sender: FDA-Public Use
  Company Number: AU-PFIZER INC-2011130383

PATIENT
  Age: 71 Year
  Sex: Male

DRUGS (2)
  1. CYKLOKAPRON [Suspect]
     Dosage: 1 G, EVERY 4 HRS
     Route: 042
  2. CYKLOKAPRON [Suspect]
     Dosage: 5 G GIVEN INSTEAD OF 1G
     Route: 042

REACTIONS (3)
  - DRUG ADMINISTRATION ERROR [None]
  - ACCIDENTAL OVERDOSE [None]
  - DEATH [None]
